FAERS Safety Report 6374444-5 (Version None)
Quarter: 2009Q3

REPORT INFORMATION
  Report Type: 
  Country: None (occurrence: None)
  Receive Date: 20090924
  Receipt Date: 20090911
  Transmission Date: 20100115
  Serious: Yes (Other)
  Sender: FDA-Public Use
  Company Number: FR-PFIZER INC-2009258685

PATIENT

DRUGS (3)
  1. ANSATIPINE [Suspect]
     Indication: HELICOBACTER INFECTION
     Dosage: 450 MG, 1X/DAY
     Route: 048
     Dates: start: 20090713, end: 20090721
  2. INEXIUM [Concomitant]
     Indication: HELICOBACTER INFECTION
     Dosage: UNK
  3. AMOXICILLIN [Concomitant]
     Indication: HELICOBACTER INFECTION
     Dosage: UNK

REACTIONS (9)
  - ARTHRALGIA [None]
  - BLOOD CREATINE PHOSPHOKINASE INCREASED [None]
  - FATIGUE [None]
  - HEADACHE [None]
  - MYALGIA [None]
  - NEUTROPENIA [None]
  - PYREXIA [None]
  - THROMBOCYTOPENIA [None]
  - TRANSAMINASES INCREASED [None]
